FAERS Safety Report 6165602-3 (Version None)
Quarter: 2009Q2

REPORT INFORMATION
  Report Type: 
  Country: None (occurrence: None)
  Receive Date: 20090423
  Receipt Date: 20090409
  Transmission Date: 20091009
  Serious: Yes (Hospitalization)
  Sender: FDA-Public Use
  Company Number: DE-CELGENEUS-062-C5013-09030904

PATIENT
  Sex: Male

DRUGS (5)
  1. CC-5013 [Suspect]
     Indication: MULTIPLE MYELOMA
     Route: 048
     Dates: start: 20081215
  2. CC-5013 [Suspect]
     Route: 048
     Dates: start: 20090216, end: 20090306
  3. CC-5013 [Suspect]
     Route: 048
     Dates: start: 20090406
  4. DEXAMETHASONE [Suspect]
     Indication: MULTIPLE MYELOMA
     Route: 065
     Dates: start: 20081215, end: 20090306
  5. DEXAMETHASONE [Suspect]
     Route: 065
     Dates: start: 20090406

REACTIONS (2)
  - DIVERTICULAR PERFORATION [None]
  - THROMBOSIS [None]
